FAERS Safety Report 23547181 (Version 1)
Quarter: 2024Q1

REPORT INFORMATION
  Report Type: Spontaneous
  Country: FR (occurrence: FR)
  Receive Date: 20240221
  Receipt Date: 20240221
  Transmission Date: 20240410
  Serious: Yes (Other)
  Sender: FDA-Public Use
  Company Number: FR-BRISTOL-MYERS SQUIBB COMPANY-2022-017821

PATIENT
  Age: 52 Year
  Sex: Male
  Weight: 79 kg

DRUGS (6)
  1. AZACITIDINE [Suspect]
     Active Substance: AZACITIDINE
     Indication: Acute myeloid leukaemia
     Dosage: 200 MILLIGRAM, ONCE A DAY FOR 14 DAYS
     Route: 048
     Dates: end: 202112
  2. AZACITIDINE [Suspect]
     Active Substance: AZACITIDINE
     Dosage: 300 MG PER DAY FOR 14 DAY (28 DAYS TREATMENT CYCLE) .THEN, 200 MG PER DAY FOR 14 DAY (28 DAYS TREATM
     Route: 048
     Dates: start: 20211012, end: 20211122
  3. AZACITIDINE [Suspect]
     Active Substance: AZACITIDINE
     Dosage: 200 MILLIGRAM, ONCE A DAY ( 200 MG PER DAY FOR 14 DAYS (28 DAYS TREATMENT CYCLE))
     Route: 048
     Dates: start: 20220125
  4. BACTRIM [Concomitant]
     Active Substance: SULFAMETHOXAZOLE\TRIMETHOPRIM
     Indication: Product used for unknown indication
     Dosage: UNK
     Route: 065
  5. VALACYCLOVIR HYDROCHLORIDE [Concomitant]
     Active Substance: VALACYCLOVIR HYDROCHLORIDE
     Indication: Product used for unknown indication
     Dosage: UNK
     Route: 065
  6. LEUCOVORIN CALCIUM [Concomitant]
     Active Substance: LEUCOVORIN CALCIUM
     Indication: Product used for unknown indication
     Dosage: UNK
     Route: 065

REACTIONS (4)
  - Diarrhoea [Unknown]
  - Vomiting [Unknown]
  - Platelet disorder [Unknown]
  - Nausea [Unknown]

NARRATIVE: CASE EVENT DATE: 20211201
